FAERS Safety Report 18183193 (Version 1)
Quarter: 2020Q3

REPORT INFORMATION
  Report Type: Spontaneous
  Country: US (occurrence: US)
  Receive Date: 20200822
  Receipt Date: 20200822
  Transmission Date: 20201103
  Serious: No
  Sender: FDA-Public Use
  Company Number: US-B.I. PHARMACEUTICALS,INC./RIDGEFIELD-2020-BI-042693

PATIENT
  Age: 69 Year
  Sex: Female

DRUGS (4)
  1. OFEV [Suspect]
     Active Substance: NINTEDANIB
     Indication: PULMONARY FIBROSIS
     Route: 065
  2. BUMETANIDE. [Concomitant]
     Active Substance: BUMETANIDE
     Indication: PRODUCT USED FOR UNKNOWN INDICATION
     Route: 065
  3. PREDNISONE. [Concomitant]
     Active Substance: PREDNISONE
     Indication: PRODUCT USED FOR UNKNOWN INDICATION
     Route: 065
  4. ALDACTONE [Concomitant]
     Active Substance: SPIRONOLACTONE
     Indication: PULMONARY FIBROSIS

REACTIONS (3)
  - Feeling abnormal [Not Recovered/Not Resolved]
  - Mental status changes [Not Recovered/Not Resolved]
  - Blood potassium decreased [Unknown]
